FAERS Safety Report 12983677 (Version 1)
Quarter: 2016Q4

REPORT INFORMATION
  Report Type: Spontaneous
  Country: US (occurrence: US)
  Receive Date: 20161129
  Receipt Date: 20161129
  Transmission Date: 20170207
  Serious: Yes (Hospitalization)
  Sender: FDA-Public Use
  Company Number: US-LUNDBECK-DKLU2022986

PATIENT
  Age: 12 Year
  Sex: Male

DRUGS (8)
  1. ONFI [Suspect]
     Active Substance: CLOBAZAM
     Indication: EPILEPSY
     Route: 048
  2. ONFI [Suspect]
     Active Substance: CLOBAZAM
     Route: 048
  3. ONFI [Suspect]
     Active Substance: CLOBAZAM
     Route: 048
  4. ONFI [Suspect]
     Active Substance: CLOBAZAM
     Route: 048
  5. SABRIL [Suspect]
     Active Substance: VIGABATRIN
     Indication: EPILEPSY
     Route: 048
  6. SABRIL [Suspect]
     Active Substance: VIGABATRIN
     Route: 048
  7. LAMICTAL [Concomitant]
     Active Substance: LAMOTRIGINE
     Indication: PRODUCT USED FOR UNKNOWN INDICATION
     Route: 065
  8. BANZEL [Concomitant]
     Active Substance: RUFINAMIDE
     Indication: PRODUCT USED FOR UNKNOWN INDICATION
     Route: 065

REACTIONS (5)
  - Seizure [Unknown]
  - Reduced facial expression [Unknown]
  - Respiratory failure [Unknown]
  - Muscle contracture [Unknown]
  - Femur fracture [Unknown]

NARRATIVE: CASE EVENT DATE: 201505
